FAERS Safety Report 25419858 (Version 2)
Quarter: 2025Q3

REPORT INFORMATION
  Report Type: Spontaneous
  Country: US (occurrence: US)
  Receive Date: 20250610
  Receipt Date: 20250903
  Transmission Date: 20251021
  Serious: No
  Sender: SANOFI AVENTIS
  Company Number: US-SA-2025SA162124

PATIENT
  Age: 30 Year
  Sex: Male

DRUGS (6)
  1. DUPIXENT [Suspect]
     Active Substance: DUPILUMAB
     Indication: Dermatitis atopic
     Dosage: 300 MG, QOW
     Route: 058
     Dates: start: 2025
  2. OMEPRAZOLE [Concomitant]
     Active Substance: OMEPRAZOLE
  3. SINGULAIR [Concomitant]
     Active Substance: MONTELUKAST SODIUM
  4. TRELEGY ELLIPTA [Concomitant]
     Active Substance: FLUTICASONE FUROATE\UMECLIDINIUM BROMIDE\VILANTEROL TRIFENATATE
  5. ZYRTEC [Concomitant]
     Active Substance: CETIRIZINE HYDROCHLORIDE
  6. NEMLUVIO [Concomitant]
     Active Substance: NEMOLIZUMAB-ILTO

REACTIONS (7)
  - Sleep disorder due to a general medical condition [Not Recovered/Not Resolved]
  - Impaired quality of life [Unknown]
  - Asthma [Not Recovered/Not Resolved]
  - Localised infection [Unknown]
  - Dermatitis atopic [Unknown]
  - Discomfort [Unknown]
  - Rash [Unknown]

NARRATIVE: CASE EVENT DATE: 20250101
